FAERS Safety Report 5518980-X (Version None)
Quarter: 2007Q4

REPORT INFORMATION
  Report Type: 
  Country: None (occurrence: None)
  Receive Date: 20071116
  Receipt Date: 20071107
  Transmission Date: 20080405
  Serious: Yes (Hospitalization)
  Sender: FDA-Public Use
  Company Number: PHBS2007GR18654

PATIENT
  Age: 58 Year
  Sex: Female

DRUGS (6)
  1. DICLOFENAC SODIUM [Suspect]
  2. PIROXICAM [Suspect]
  3. SULINDAC [Suspect]
  4. NAPROXEN [Suspect]
  5. INDOMETHACIN [Suspect]
  6. NIMESULIDE [Suspect]

REACTIONS (7)
  - ABDOMINAL PAIN [None]
  - BLOOD IRON DECREASED [None]
  - CONSTIPATION [None]
  - HAEMOGLOBIN DECREASED [None]
  - INTESTINAL STENOSIS [None]
  - MESENTERIC FIBROSIS [None]
  - SERUM FERRITIN DECREASED [None]
